FAERS Safety Report 4431660-7 (Version None)
Quarter: 2004Q3

REPORT INFORMATION
  Report Type: 
  Country: None (occurrence: None)
  Receive Date: 20040721
  Receipt Date: 20040514
  Transmission Date: 20050211
  Serious: Yes (Other)
  Sender: FDA-Public Use
  Company Number: 2004022042

PATIENT
  Age: 42 Year
  Sex: Female

DRUGS (1)
  1. RELPAX [Suspect]
     Indication: MIGRAINE
     Dosage: 40 MG, ONCE

REACTIONS (4)
  - DIZZINESS [None]
  - MUSCLE SPASMS [None]
  - NAUSEA [None]
  - UNEVALUABLE EVENT [None]
